FAERS Safety Report 11307195 (Version 1)
Quarter: 2015Q3

REPORT INFORMATION
  Report Type: Spontaneous
  Country: FR (occurrence: FR)
  Receive Date: 20150723
  Receipt Date: 20150723
  Transmission Date: 20151125
  Serious: Yes (Other)
  Sender: FDA-Public Use
  Company Number: FR-009507513-1507FRA010147

PATIENT
  Age: 76 Year
  Sex: Male

DRUGS (6)
  1. APROVEL [Concomitant]
     Active Substance: IRBESARTAN
  2. ABILIFY [Suspect]
     Active Substance: ARIPIPRAZOLE
     Route: 048
  3. KARDEGIC [Concomitant]
     Active Substance: ASPIRIN LYSINE
  4. INIPOMP [Concomitant]
     Active Substance: PANTOPRAZOLE SODIUM
  5. NORSET [Suspect]
     Active Substance: MIRTAZAPINE
     Route: 048
  6. SEROPLEX [Suspect]
     Active Substance: ESCITALOPRAM OXALATE
     Route: 048

REACTIONS (1)
  - Parkinsonism [Recovered/Resolved with Sequelae]

NARRATIVE: CASE EVENT DATE: 200703
